FAERS Safety Report 24842673 (Version 2)
Quarter: 2025Q3

REPORT INFORMATION
  Report Type: Spontaneous
  Country: US (occurrence: US)
  Receive Date: 20250115
  Receipt Date: 20250925
  Transmission Date: 20251020
  Serious: Yes (Hospitalization, Other)
  Sender: NOVO NORDISK
  Company Number: US-NOVOPROD-1347656

PATIENT
  Age: 45 Year
  Sex: Female
  Weight: 107.94 kg

DRUGS (3)
  1. OZEMPIC [Suspect]
     Active Substance: SEMAGLUTIDE
     Indication: Type 2 diabetes mellitus
     Dosage: 2.5 MG, QW
     Dates: start: 20210101, end: 20231201
  2. NOVAREL [Concomitant]
     Active Substance: CHORIOGONADOTROPIN ALFA
     Indication: Type 2 diabetes mellitus
     Dates: start: 20180120, end: 20210101
  3. VITAMINS NOS [Concomitant]
     Active Substance: VITAMINS
     Indication: Nutritional supplementation
     Dates: start: 20160101, end: 20250624

REACTIONS (3)
  - Impaired gastric emptying [Recovered/Resolved]
  - Emotional distress [Unknown]
  - Off label use [Unknown]

NARRATIVE: CASE EVENT DATE: 20210101
